FAERS Safety Report 20446380 (Version 3)
Quarter: 2022Q1

REPORT INFORMATION
  Report Type: Report from Study
  Country: GB (occurrence: GB)
  Receive Date: 20220208
  Receipt Date: 20220328
  Transmission Date: 20220424
  Serious: Yes (Life-Threatening, Hospitalization)
  Sender: FDA-Public Use
  Company Number: GB-PFIZER INC-202200206200

PATIENT
  Weight: 48 kg

DRUGS (14)
  1. GEMTUZUMAB OZOGAMICIN [Suspect]
     Active Substance: GEMTUZUMAB OZOGAMICIN
     Indication: Acute myeloid leukaemia
     Dosage: 4.3 MG(OTHER)
     Route: 042
     Dates: start: 20211023, end: 20211023
  2. MITOXANTRONE HYDROCHLORIDE [Suspect]
     Active Substance: MITOXANTRONE HYDROCHLORIDE
     Indication: Acute myeloid leukaemia
     Dosage: 12 MG/M2, 1X/DAY
     Route: 042
     Dates: start: 20211020, end: 20211215
  3. AMPHOTERICIN B [Concomitant]
     Active Substance: AMPHOTERICIN B
     Indication: Prophylaxis
     Dosage: 120 MG, 1X/DAY
     Dates: start: 20211216, end: 20211216
  4. CHLORPHENIRAMINE MALEATE [Concomitant]
     Active Substance: CHLORPHENIRAMINE MALEATE
     Indication: Hypersensitivity
     Dosage: 10 MG, 1X/DAY
     Dates: start: 20211216, end: 20211216
  5. DOCUSATE [Concomitant]
     Active Substance: DOCUSATE
     Indication: Constipation
     Dosage: 100 MG, 2X/DAY
     Dates: start: 20211218, end: 20211220
  6. DOCUSATE [Concomitant]
     Active Substance: DOCUSATE
     Dosage: 100 MG, 3X/DAY
     Dates: start: 20211220
  7. METOCLOPRAMIDE [Concomitant]
     Active Substance: METOCLOPRAMIDE
     Indication: Nausea
     Dosage: 5 MG, 3X/DAY
     Dates: start: 20211213
  8. METOCLOPRAMIDE [Concomitant]
     Active Substance: METOCLOPRAMIDE
     Indication: Vomiting
  9. NORETHINDRONE [Concomitant]
     Active Substance: NORETHINDRONE
     Indication: Contraception
     Dosage: 5 MG, 3X/DAY
  10. ONDANSETRON [Concomitant]
     Active Substance: ONDANSETRON
     Indication: Nausea
     Dosage: 8 MG, 4X/DAY
     Dates: start: 20211214
  11. ONDANSETRON [Concomitant]
     Active Substance: ONDANSETRON
     Indication: Vomiting
  12. VORICONAZOLE [Concomitant]
     Active Substance: VORICONAZOLE
     Indication: Prophylaxis
     Dosage: 200 MG, 1X/DAY
     Dates: start: 20211220
  13. ACETAMINOPHEN [Concomitant]
     Active Substance: ACETAMINOPHEN
     Indication: Pain
     Dosage: 700 MG, AS NEEDED
     Dates: start: 20211213
  14. PIPERACILLIN SODIUM\TAZOBACTAM SODIUM [Concomitant]
     Active Substance: PIPERACILLIN SODIUM\TAZOBACTAM SODIUM
     Indication: Febrile neutropenia
     Dosage: 4.2 MG, 4X/DAY
     Dates: start: 20211224, end: 20211227

REACTIONS (3)
  - Sepsis [Recovered/Resolved]
  - Neutrophil count decreased [Recovered/Resolved]
  - Pyrexia [Recovered/Resolved]

NARRATIVE: CASE EVENT DATE: 20211229
